FAERS Safety Report 10818929 (Version 2)
Quarter: 2016Q1

REPORT INFORMATION
  Report Type: Report from Study
  Country: US (occurrence: US)
  Receive Date: 20150218
  Receipt Date: 20160201
  Transmission Date: 20160525
  Serious: No
  Sender: FDA-Public Use
  Company Number: US-ABBVIE-14K-163-1297823-00

PATIENT
  Age: 38 Year
  Sex: Female
  Weight: 78.54 kg

DRUGS (15)
  1. FLEXERIL [Concomitant]
     Active Substance: CYCLOBENZAPRINE HYDROCHLORIDE
     Indication: PRODUCT USED FOR UNKNOWN INDICATION
     Route: 048
  2. NABUMETONE. [Concomitant]
     Active Substance: NABUMETONE
     Indication: PRODUCT USED FOR UNKNOWN INDICATION
  3. HUMIRA [Suspect]
     Active Substance: ADALIMUMAB
     Indication: RHEUMATOID ARTHRITIS
     Route: 058
     Dates: start: 201408
  4. PLAQUENIL [Concomitant]
     Active Substance: HYDROXYCHLOROQUINE SULFATE
     Indication: PRODUCT USED FOR UNKNOWN INDICATION
     Route: 048
  5. MEDROL [Concomitant]
     Active Substance: METHYLPREDNISOLONE
     Indication: ARTHRITIS
     Dosage: AS DIRECTED
  6. VITAMIN D [Concomitant]
     Active Substance: CHOLECALCIFEROL
     Indication: PRODUCT USED FOR UNKNOWN INDICATION
  7. ZOFRAN [Concomitant]
     Active Substance: ONDANSETRON HYDROCHLORIDE
     Indication: PRODUCT USED FOR UNKNOWN INDICATION
  8. LEVAQUIN [Concomitant]
     Active Substance: LEVOFLOXACIN
     Indication: URINARY TRACT INFECTION
     Dosage: FOR SEVEN DAYS
  9. DEPO-MEDROL [Concomitant]
     Active Substance: METHYLPREDNISOLONE ACETATE
     Indication: PRODUCT USED FOR UNKNOWN INDICATION
  10. NABUMETONE. [Concomitant]
     Active Substance: NABUMETONE
     Indication: PRODUCT USED FOR UNKNOWN INDICATION
  11. PRE NATAL FORMULA [Concomitant]
     Indication: PRODUCT USED FOR UNKNOWN INDICATION
  12. REGLAN [Concomitant]
     Active Substance: METOCLOPRAMIDE HYDROCHLORIDE
     Indication: PRODUCT USED FOR UNKNOWN INDICATION
     Route: 048
  13. HUMIRA [Suspect]
     Active Substance: ADALIMUMAB
     Indication: RHEUMATOID ARTHRITIS
     Route: 058
     Dates: start: 20150128
  14. PREDNISONE. [Suspect]
     Active Substance: PREDNISONE
     Indication: PRODUCT USED FOR UNKNOWN INDICATION
     Route: 065
  15. TRAMADOL HCL [Concomitant]
     Active Substance: TRAMADOL HYDROCHLORIDE
     Indication: PAIN
     Dosage: ONE OR TWO TABS

REACTIONS (35)
  - Alanine aminotransferase abnormal [Unknown]
  - Urinary tract infection [Recovering/Resolving]
  - Joint range of motion decreased [Unknown]
  - Fibromyalgia [Unknown]
  - Cough [Unknown]
  - Pain in extremity [Not Recovered/Not Resolved]
  - Polycystic ovaries [Unknown]
  - Fatigue [Not Recovered/Not Resolved]
  - Upper respiratory tract infection [Not Recovered/Not Resolved]
  - Hypercoagulation [Unknown]
  - Thrombocytosis [Unknown]
  - Dizziness [Unknown]
  - Feeling abnormal [Not Recovered/Not Resolved]
  - Blood glucose increased [Unknown]
  - Drug hypersensitivity [Unknown]
  - Headache [Recovered/Resolved]
  - Musculoskeletal chest pain [Unknown]
  - Rheumatoid arthritis [Unknown]
  - Malaise [Not Recovered/Not Resolved]
  - Respiratory disorder [Unknown]
  - Fall [Recovered/Resolved]
  - Nausea [Not Recovered/Not Resolved]
  - Sinusitis [Unknown]
  - Bronchitis [Unknown]
  - Tenderness [Unknown]
  - Platelet count increased [Unknown]
  - Ear infection [Unknown]
  - Crepitations [Unknown]
  - Costochondritis [Unknown]
  - Head injury [Recovered/Resolved]
  - Device issue [Unknown]
  - Mean platelet volume increased [Unknown]
  - Device issue [Unknown]
  - Wheezing [Unknown]
  - White blood cell count increased [Unknown]

NARRATIVE: CASE EVENT DATE: 201410
